FAERS Safety Report 5269986-X (Version None)
Quarter: 2007Q1

REPORT INFORMATION
  Report Type: 
  Country: None (occurrence: None)
  Receive Date: 20070320
  Receipt Date: 20070306
  Transmission Date: 20070707
  Serious: Yes (Other)
  Sender: FDA-Public Use
  Company Number: PHNU2007DE01087

PATIENT
  Sex: Female

DRUGS (4)
  1. GLEEVEC [Suspect]
     Indication: CHRONIC MYELOID LEUKAEMIA
     Dosage: 200 MG/DAY
     Route: 048
     Dates: start: 20060101
  2. GLEEVEC [Suspect]
     Dosage: 400 MG/DAY
     Route: 048
     Dates: start: 20051001, end: 20060101
  3. RAMIPRIL [Suspect]
     Indication: HYPERTENSION
     Route: 048
     Dates: end: 20061101
  4. BLOPRESS PLUS [Concomitant]
     Indication: HYPERTENSION
     Route: 048
     Dates: start: 20061101

REACTIONS (3)
  - RASH [None]
  - SWELLING FACE [None]
  - THROMBOCYTHAEMIA [None]
